FAERS Safety Report 8173613-1 (Version None)
Quarter: 2012Q1

REPORT INFORMATION
  Report Type: 
  Country: None (occurrence: None)
  Receive Date: 20120224
  Receipt Date: 20120215
  Transmission Date: 20120608
  Serious: Yes (Other)
  Sender: FDA-Public Use
  Company Number: AUR-APL-2012-01017

PATIENT
  Age: 83 Year
  Sex: Male
  Weight: 69.39 kg

DRUGS (10)
  1. XALATAN [Concomitant]
  2. GLYBURIDE [Concomitant]
  3. CO-Q-10 (UBIDECARENONE) [Concomitant]
  4. CARVEDILOL [Concomitant]
  5. ASPIRIN [Concomitant]
  6. MELOXICAM [Suspect]
     Indication: PRODUCT USED FOR UNKNOWN INDICATION
     Dosage: (7.5 MG),
  7. SIMVASTATIN [Concomitant]
  8. LYRICA [Suspect]
     Indication: NEURALGIA
     Dosage: 150 MG (150 MG,  1 IN 1 D),ORAL
     Route: 048
     Dates: start: 20120210, end: 20120212
  9. IBUPROFEN [Suspect]
     Indication: PRODUCT USED FOR UNKNOWN INDICATION
  10. FENTANYL [Concomitant]

REACTIONS (7)
  - VISUAL ACUITY REDUCED [None]
  - CEREBROVASCULAR ACCIDENT [None]
  - INTRAOCULAR PRESSURE INCREASED [None]
  - GASTRITIS [None]
  - CONDITION AGGRAVATED [None]
  - DIZZINESS [None]
  - DIPLOPIA [None]
